FAERS Safety Report 24054025 (Version 1)
Quarter: 2024Q3

REPORT INFORMATION
  Report Type: Other
  Country: GB (occurrence: GB)
  Receive Date: 20240705
  Receipt Date: 20240705
  Transmission Date: 20241017
  Serious: Yes (Other)
  Sender: MACLEODS
  Company Number: None

PATIENT

DRUGS (4)
  1. LEVOFLOXACIN [Suspect]
     Active Substance: LEVOFLOXACIN
     Indication: Helicobacter infection
     Dosage: 50 MG ONCE A DAY AT NIGHT FOR 10 DAYS
     Route: 065
     Dates: start: 20240606, end: 20240616
  2. ERYTHROMYCIN [Concomitant]
     Active Substance: ERYTHROMYCIN
     Route: 065
     Dates: start: 20240520, end: 20240527
  3. AMOXICILLIN TRIHYDRATE [Concomitant]
     Active Substance: AMOXICILLIN
     Route: 065
     Dates: start: 20240606, end: 20240616
  4. LANSOPRAZOLE [Concomitant]
     Active Substance: LANSOPRAZOLE
     Route: 065
     Dates: start: 20240606, end: 20240616

REACTIONS (15)
  - Candida infection [Recovering/Resolving]
  - Rectal haemorrhage [Recovering/Resolving]
  - Vaginal haemorrhage [Recovering/Resolving]
  - Amnesia [Not Recovered/Not Resolved]
  - Muscle oedema [Not Recovered/Not Resolved]
  - Fatigue [Recovering/Resolving]
  - Skin burning sensation [Not Recovered/Not Resolved]
  - Pain in extremity [Not Recovered/Not Resolved]
  - Pain in extremity [Not Recovered/Not Resolved]
  - Muscular weakness [Not Recovered/Not Resolved]
  - Paraesthesia [Recovering/Resolving]
  - Arthralgia [Not Recovered/Not Resolved]
  - Arthralgia [Not Recovered/Not Resolved]
  - Arthralgia [Not Recovered/Not Resolved]
  - Medication error [Unknown]

NARRATIVE: CASE EVENT DATE: 20240610
